FAERS Safety Report 7349927-1 (Version None)
Quarter: 2011Q1

REPORT INFORMATION
  Report Type: 
  Country: None (occurrence: None)
  Receive Date: 20110314
  Receipt Date: 20110303
  Transmission Date: 20110831
  Serious: Yes (Hospitalization)
  Sender: FDA-Public Use
  Company Number: SE-BRISTOL-MYERS SQUIBB COMPANY-15599970

PATIENT
  Sex: Female

DRUGS (16)
  1. CEFAMOX [Concomitant]
     Indication: PYREXIA
     Dates: end: 20110302
  2. DURAGESIC-100 [Concomitant]
     Dosage: 25 MICROGRAM/TIM EVERY 3 DAY,12MICROGRAM/TIM EVERY 3 DAY.ADHESIVE PLASTERS
  3. ERBITUX [Suspect]
     Indication: METASTASES TO LYMPH NODES
  4. DIFLUCAN [Concomitant]
  5. LYRICA [Concomitant]
     Dosage: 2
  6. CLINOMEL [Concomitant]
  7. ALVEDON [Concomitant]
  8. TRACEL [Concomitant]
  9. ERBITUX [Suspect]
     Indication: NASAL SINUS CANCER
  10. DICLOFENAC SODIUM [Suspect]
     Dates: end: 20110228
  11. BETAPRED [Concomitant]
     Dosage: STRENGTH=4MG/ML
  12. ZOPICLONE [Concomitant]
     Dosage: AT NIGHT
  13. OMEPRAZOLE [Concomitant]
  14. XANOR [Concomitant]
  15. CHLOROMYCETIN [Concomitant]
     Dosage: STRENGTH=5MG/ML, 2 DROPPER*6
  16. MORPHINE [Concomitant]
     Indication: ORAL PAIN
     Dosage: TO GARGLE IN THE MOUTH.
     Route: 048

REACTIONS (2)
  - DIARRHOEA HAEMORRHAGIC [None]
  - HYPOPHAGIA [None]
